FAERS Safety Report 5933687-2 (Version None)
Quarter: 2008Q4

REPORT INFORMATION
  Report Type: 
  Country: None (occurrence: None)
  Receive Date: 20081029
  Receipt Date: 20081016
  Transmission Date: 20090506
  Serious: Yes (Life-Threatening, Hospitalization)
  Sender: FDA-Public Use
  Company Number: FR-SANOFI-SYNTHELABO-A02200803099

PATIENT
  Sex: Male

DRUGS (7)
  1. GLUCOPHAGE [Concomitant]
     Dosage: UNK
     Route: 048
     Dates: start: 20080701
  2. PNEUMOREL [Concomitant]
     Dosage: UNK
     Route: 048
  3. SYMBICORT [Concomitant]
     Dosage: UNK
     Route: 055
  4. PANTOPRAZOLE SODIUM [Concomitant]
     Dosage: UNK
     Route: 065
     Dates: end: 20080901
  5. AMARYL [Concomitant]
     Dosage: UNK
     Route: 048
  6. CEBUTID [Suspect]
     Indication: DRUG USE FOR UNKNOWN INDICATION
     Route: 048
     Dates: start: 20080924, end: 20080925
  7. XATRAL [Suspect]
     Indication: DRUG USE FOR UNKNOWN INDICATION
     Route: 048
     Dates: start: 20080920, end: 20080927

REACTIONS (3)
  - GINGIVAL BLEEDING [None]
  - PETECHIAE [None]
  - THROMBOCYTOPENIA [None]
